FAERS Safety Report 5541932-0 (Version None)
Quarter: 2007Q4

REPORT INFORMATION
  Report Type: 
  Country: None (occurrence: None)
  Receive Date: 20071210
  Receipt Date: 20071128
  Transmission Date: 20080405
  Serious: Yes (Hospitalization)
  Sender: FDA-Public Use
  Company Number: AU-ROCHE-527886

PATIENT
  Age: 42 Year
  Sex: Female
  Weight: 103 kg

DRUGS (2)
  1. CAPECITABINE [Suspect]
     Route: 048
     Dates: start: 20070308
  2. BLINDED BEVACIZUMAB [Suspect]
     Route: 042
     Dates: start: 20070308

REACTIONS (1)
  - URETERIC OBSTRUCTION [None]
